FAERS Safety Report 7371415-7 (Version None)
Quarter: 2011Q1

REPORT INFORMATION
  Report Type: 
  Country: None (occurrence: None)
  Receive Date: 20110322
  Receipt Date: 20110322
  Transmission Date: 20110831
  Serious: Yes (Death, Hospitalization)
  Sender: FDA-Public Use
  Company Number: None

PATIENT
  Sex: Male
  Weight: 88 kg

DRUGS (12)
  1. TERAZOSIN [Concomitant]
  2. BISOPROLOL FUMARATE [Concomitant]
  3. DIGOXIN [Concomitant]
  4. LOSARTAN POTASSIUM [Concomitant]
  5. ASPIRIN [Concomitant]
  6. FUROSEMIDE [Concomitant]
  7. SPIRONOLACTONE [Concomitant]
  8. SIMVASTATIN [Concomitant]
  9. ATENOLOL [Concomitant]
  10. CRESTOR [Concomitant]
  11. PRADAXA [Suspect]
     Indication: ATRIAL FIBRILLATION
     Dosage: 150MG BID PO
     Route: 048
     Dates: start: 20110314, end: 20110315
  12. OMEPRAZOLE [Concomitant]

REACTIONS (5)
  - UNRESPONSIVE TO STIMULI [None]
  - VOMITING [None]
  - BRAIN MIDLINE SHIFT [None]
  - RESPIRATION ABNORMAL [None]
  - CEREBRAL HAEMORRHAGE [None]
